FAERS Safety Report 7029426-7 (Version None)
Quarter: 2010Q4

REPORT INFORMATION
  Report Type: 
  Country: None (occurrence: None)
  Receive Date: 20101005
  Receipt Date: 20100930
  Transmission Date: 20110411
  Serious: Yes (Death, Hospitalization)
  Sender: FDA-Public Use
  Company Number: PHHY2010BR65451

PATIENT
  Sex: Female
  Weight: 40 kg

DRUGS (7)
  1. EXELON [Suspect]
     Indication: DEMENTIA ALZHEIMER'S TYPE
     Dosage: 1 DF, QD
     Dates: start: 20100701
  2. LACIPIL [Concomitant]
     Indication: HYPERTENSION
  3. PROPRANOLOL HYDROCHLORIDE [Concomitant]
     Indication: INFARCTION
  4. AMARYL [Concomitant]
     Indication: DIABETES MELLITUS
     Dosage: 1 DF, QD
  5. INSULIN [Concomitant]
     Indication: DIABETES MELLITUS
     Dosage: 28 IU IN THE MORNING AND 8 IU AT NIGHT
     Route: 058
  6. GLIMEPIRIDE [Concomitant]
     Indication: DIABETES MELLITUS
     Dosage: 1 DF, QD
     Route: 048
  7. CAPTOPRIL [Concomitant]
     Indication: HYPERTENSION
     Dosage: 1 DF, TID
     Route: 048

REACTIONS (1)
  - CEREBROVASCULAR ACCIDENT [None]
